FAERS Safety Report 4298484-5 (Version None)
Quarter: 2004Q1

REPORT INFORMATION
  Report Type: 
  Country: None (occurrence: None)
  Receive Date: 20040218
  Receipt Date: 20031013
  Transmission Date: 20041129
  Serious: Yes (Hospitalization, Other)
  Sender: FDA-Public Use
  Company Number: US-BRISTOL-MYERS SQUIBB COMPANY-12415121

PATIENT
  Age: 36 Year
  Sex: Female

DRUGS (6)
  1. STADOL [Suspect]
     Indication: MIGRAINE
     Route: 045
     Dates: start: 19961104
  2. ACETAMINOPHEN W/ CODEINE [Concomitant]
  3. PROPOXYPHENE NAPSYLATE + ASA [Concomitant]
  4. HYDROCODONE + ACETAMINOPHEN [Concomitant]
  5. OXYCODONE HCL [Concomitant]
  6. COMPAZINE [Concomitant]

REACTIONS (1)
  - DEPENDENCE [None]
